FAERS Safety Report 9198355 (Version 1)
Quarter: 2013Q1

REPORT INFORMATION
  Report Type: Spontaneous
  Country: US (occurrence: None)
  Receive Date: 20130327
  Receipt Date: 20130327
  Transmission Date: 20140127
  Serious: Yes (Other)
  Sender: FDA-Public Use
  Company Number: None

PATIENT
  Age: 25 Year
  Sex: Female

DRUGS (1)
  1. HUMIRA [Suspect]
     Indication: ANKYLOSING SPONDYLITIS
     Dosage: 40MG EVERY 2 WEEKS SQ
     Dates: start: 20130225, end: 20130325

REACTIONS (5)
  - Injection site swelling [None]
  - Injection site erythema [None]
  - Injection site warmth [None]
  - Pruritus [None]
  - Pyrexia [None]
